FAERS Safety Report 8458300-4 (Version None)
Quarter: 2012Q2

REPORT INFORMATION
  Report Type: 
  Country: None (occurrence: None)
  Receive Date: 20120622
  Receipt Date: 20120617
  Transmission Date: 20120825
  Serious: Yes (Other)
  Sender: FDA-Public Use
  Company Number: US-PFIZER INC-2012145849

PATIENT
  Sex: Female

DRUGS (1)
  1. TOVIAZ [Suspect]
     Dosage: 4 MG, UNK

REACTIONS (3)
  - SWOLLEN TONGUE [None]
  - COUGH [None]
  - WRONG TECHNIQUE IN DRUG USAGE PROCESS [None]
